FAERS Safety Report 9523342 (Version 2)
Quarter: 2016Q1

REPORT INFORMATION
  Report Type: Report from Study
  Country: MX (occurrence: MX)
  Receive Date: 20130913
  Receipt Date: 20160229
  Transmission Date: 20160526
  Serious: Yes (Other)
  Sender: FDA-Public Use
  Company Number: PHHY2013MX100467

PATIENT
  Age: 68 Year
  Sex: Female

DRUGS (10)
  1. ALEVIAN DUO                        /06593801/ [Concomitant]
     Dosage: 1 OT, QD
     Route: 065
     Dates: start: 201306
  2. LEVOFLOXACIN. [Concomitant]
     Active Substance: LEVOFLOXACIN
     Indication: ANTIBIOTIC THERAPY
     Dosage: 1 OT, QD
     Route: 065
     Dates: start: 201306, end: 201306
  3. TENORETIC [Concomitant]
     Active Substance: ATENOLOL\CHLORTHALIDONE
     Indication: HYPERTENSION
     Dosage: 1 OT, QD
     Route: 065
     Dates: start: 1985
  4. DEXIVANT [Concomitant]
     Indication: PROPHYLAXIS
     Dosage: 1 OT, QD
     Route: 065
  5. ACLASTA [Suspect]
     Active Substance: ZOLEDRONIC ACID
     Indication: OSTEOPENIA
  6. ATENOLOL. [Concomitant]
     Active Substance: ATENOLOL
     Indication: HYPERTENSION
     Route: 065
  7. TAFIL [Concomitant]
     Active Substance: ALPRAZOLAM
     Indication: SLEEP DISORDER
     Dosage: 0.5 OT, QD
     Route: 065
     Dates: start: 2009
  8. ACLASTA [Suspect]
     Active Substance: ZOLEDRONIC ACID
     Indication: OSTEOPOROSIS
     Dosage: 1 DF, Q12MO
     Route: 042
     Dates: start: 2009, end: 2009
  9. ALEVIAN DUO                        /06593801/ [Concomitant]
     Indication: INFLAMMATORY BOWEL DISEASE
     Dosage: 2 OT, UNK
     Route: 065
  10. ALPRAZOLAM. [Concomitant]
     Active Substance: ALPRAZOLAM
     Indication: SLEEP DISORDER
     Dosage: 0.5 OT, UNK
     Route: 065

REACTIONS (6)
  - Arthralgia [Recovered/Resolved]
  - Urinary tract infection [Recovered/Resolved]
  - Gastrointestinal infection [Recovered/Resolved]
  - Sleep disorder [Unknown]
  - Pain [Unknown]
  - Visual impairment [Unknown]

NARRATIVE: CASE EVENT DATE: 201305
